FAERS Safety Report 18190496 (Version 1)
Quarter: 2020Q3

REPORT INFORMATION
  Report Type: Spontaneous
  Country: ES (occurrence: ES)
  Receive Date: 20200825
  Receipt Date: 20200825
  Transmission Date: 20201103
  Serious: Yes (Other)
  Sender: FDA-Public Use
  Company Number: ES-LUPIN PHARMACEUTICALS INC.-2020-05024

PATIENT
  Age: 33 Year
  Sex: Female

DRUGS (4)
  1. METHYLPREDNISOLONE. [Suspect]
     Active Substance: METHYLPREDNISOLONE
     Indication: RELAPSING-REMITTING MULTIPLE SCLEROSIS
     Dosage: UNK
     Route: 042
  2. METHYLPREDNISOLONE. [Suspect]
     Active Substance: METHYLPREDNISOLONE
     Dosage: 1 GRAM, QD
     Route: 042
  3. NATALIZUMAB [Suspect]
     Active Substance: NATALIZUMAB
     Dosage: UNK (EVERY 6 WEEKS)
     Route: 065
  4. NATALIZUMAB [Suspect]
     Active Substance: NATALIZUMAB
     Indication: RELAPSING-REMITTING MULTIPLE SCLEROSIS
     Dosage: UNK (STOPPED BEFORE PREGANNCY)
     Route: 065

REACTIONS (5)
  - Relapsing-remitting multiple sclerosis [Recovering/Resolving]
  - Premature delivery [Unknown]
  - Exposure during pregnancy [Unknown]
  - Condition aggravated [Recovering/Resolving]
  - Preterm premature rupture of membranes [Unknown]
